FAERS Safety Report 16787784 (Version 3)
Quarter: 2019Q4

REPORT INFORMATION
  Report Type: Spontaneous
  Country: GB (occurrence: GB)
  Receive Date: 20190909
  Receipt Date: 20191209
  Transmission Date: 20200122
  Serious: Yes (Other)
  Sender: FDA-Public Use
  Company Number: GB-ELI_LILLY_AND_COMPANY-GB201908014768

PATIENT
  Age: 80 Year
  Sex: Female

DRUGS (6)
  1. OLUMIANT [Suspect]
     Active Substance: BARICITINIB
     Dosage: 4 MG, DAILY
     Route: 048
     Dates: start: 20190917
  2. LANSOPRAZOLE. [Concomitant]
     Active Substance: LANSOPRAZOLE
     Dosage: UNK
  3. ATORVASTATIN [Concomitant]
     Active Substance: ATORVASTATIN
  4. LOSARTAN. [Concomitant]
     Active Substance: LOSARTAN
  5. BISOPROLOL [Concomitant]
     Active Substance: BISOPROLOL
  6. OLUMIANT [Suspect]
     Active Substance: BARICITINIB
     Indication: RHEUMATOID ARTHRITIS
     Dosage: 4 MG, UNKNOWN
     Route: 048
     Dates: start: 201808, end: 20190705

REACTIONS (2)
  - Infection [Unknown]
  - Visual impairment [Recovering/Resolving]
